FAERS Safety Report 10088736 (Version 2)
Quarter: 2014Q2

REPORT INFORMATION
  Report Type: Spontaneous
  Country: US (occurrence: US)
  Receive Date: 20140421
  Receipt Date: 20140501
  Transmission Date: 20141212
  Serious: Yes (Other)
  Sender: FDA-Public Use
  Company Number: US-BIOGENIDEC-2014BI033342

PATIENT
  Age: 37 Year
  Sex: Female

DRUGS (1)
  1. TECFIDERA [Suspect]
     Indication: MULTIPLE SCLEROSIS
     Route: 048
     Dates: start: 20140403, end: 20140404

REACTIONS (5)
  - Anaphylactic reaction [Unknown]
  - Dizziness [Recovered/Resolved]
  - Pruritus [Not Recovered/Not Resolved]
  - Generalised erythema [Not Recovered/Not Resolved]
  - Feeling hot [Not Recovered/Not Resolved]
